FAERS Safety Report 21889453 (Version 1)
Quarter: 2023Q1

REPORT INFORMATION
  Report Type: Spontaneous
  Country: NL (occurrence: NL)
  Receive Date: 20230120
  Receipt Date: 20230120
  Transmission Date: 20230417
  Serious: Yes (Other)
  Sender: FDA-Public Use
  Company Number: None

PATIENT
  Sex: Male
  Weight: 69 kg

DRUGS (1)
  1. BUDESONIDE [Suspect]
     Active Substance: BUDESONIDE
     Indication: Autoimmune hepatitis
     Dosage: 6 MILLIGRAM DAILY; 2 PIECES PER DAY, BUDESONIDE CAPSULE MGA 3MG / BRAND NAME NOT SPECIFIED,
     Route: 065
     Dates: start: 20171115

REACTIONS (2)
  - Tendonitis [Recovering/Resolving]
  - Atypical mycobacterial infection [Recovering/Resolving]
